FAERS Safety Report 7354060-9 (Version None)
Quarter: 2011Q1

REPORT INFORMATION
  Report Type: 
  Country: None (occurrence: None)
  Receive Date: 20110315
  Receipt Date: 20110311
  Transmission Date: 20110831
  Serious: Yes (Death)
  Sender: FDA-Public Use
  Company Number: PHHY2011BR19991

PATIENT
  Sex: Male

DRUGS (7)
  1. EXELON [Suspect]
  2. WARFARIN SODIUM [Concomitant]
  3. SINDICOC [Concomitant]
  4. BUDECOC [Concomitant]
  5. EXELON [Suspect]
     Dosage: 13.3 MG, UNK
     Route: 062
  6. PURAN T4 [Concomitant]
  7. EXELON [Suspect]
     Dosage: 9.5 MG, UNK
     Route: 062

REACTIONS (1)
  - DEATH [None]
